FAERS Safety Report 9711965 (Version 1)
Quarter: 2013Q4

REPORT INFORMATION
  Report Type: Spontaneous
  Country: GB (occurrence: None)
  Receive Date: 20131122
  Receipt Date: 20131122
  Transmission Date: 20140711
  Serious: Yes (Other)
  Sender: FDA-Public Use
  Company Number: GB2013K4503SPO

PATIENT
  Sex: Male

DRUGS (1)
  1. LANSOPRAZOLE [Suspect]

REACTIONS (9)
  - Dyspnoea [None]
  - Gastrooesophageal reflux disease [None]
  - Muscular weakness [None]
  - Urticaria [None]
  - Salivary hypersecretion [None]
  - Aphagia [None]
  - Asthenia [None]
  - Pneumonia [None]
  - Musculoskeletal disorder [None]
